FAERS Safety Report 6313953-1 (Version None)
Quarter: 2009Q3

REPORT INFORMATION
  Report Type: 
  Country: None (occurrence: None)
  Receive Date: 20090818
  Receipt Date: 20090813
  Transmission Date: 20100115
  Serious: Yes (Other)
  Sender: FDA-Public Use
  Company Number: US-ASTRAZENECA-2009SE07929

PATIENT
  Age: 45 Year
  Sex: Female

DRUGS (2)
  1. SEROQUEL [Suspect]
     Indication: SLEEP DISORDER
     Route: 048
  2. LITHIUM [Concomitant]

REACTIONS (2)
  - IMPAIRED DRIVING ABILITY [None]
  - MYALGIA [None]
